FAERS Safety Report 9419585 (Version 2)
Quarter: 2013Q3

REPORT INFORMATION
  Report Type: Spontaneous
  Country: FR (occurrence: FR)
  Receive Date: 20130725
  Receipt Date: 20130826
  Transmission Date: 20140515
  Serious: Yes (Hospitalization)
  Sender: FDA-Public Use
  Company Number: FR-PFIZER INC-2013211264

PATIENT
  Age: 68 Year
  Sex: Male

DRUGS (10)
  1. INLYTA [Suspect]
     Indication: RENAL CANCER
     Dosage: 5 MG, 2X/DAY
     Route: 048
     Dates: start: 20130511, end: 20130520
  2. NEXAVAR [Suspect]
     Indication: RENAL CANCER
     Dosage: UNK
     Route: 048
     Dates: start: 201207, end: 20130412
  3. TEMERIT [Concomitant]
     Dosage: 5 MG, PER DAY
  4. ESIDREX [Concomitant]
     Dosage: 12.5 MG, PER DAY
  5. APROVEL [Concomitant]
     Dosage: 150 MG PER DAY
  6. NOVONORM [Concomitant]
     Dosage: 1 MG, 3X/DAY
  7. METFORMIN [Concomitant]
     Dosage: 850 MG, 3X/DAY
  8. CRESTOR [Concomitant]
     Dosage: 10 MG PER DAY
  9. GELUPRANE [Concomitant]
     Dosage: 500 MG 6 TIMES PER DAY
  10. OMEPRAZOLE [Concomitant]
     Dosage: 10 MG PER DAY

REACTIONS (4)
  - Peripheral artery thrombosis [Recovering/Resolving]
  - Ischaemia [Recovering/Resolving]
  - Disease progression [Unknown]
  - Renal cancer [Unknown]
